FAERS Safety Report 18458895 (Version 2)
Quarter: 2021Q1

REPORT INFORMATION
  Report Type: Spontaneous
  Country: IT (occurrence: IT)
  Receive Date: 20201103
  Receipt Date: 20210331
  Transmission Date: 20210419
  Serious: Yes (Other)
  Sender: FDA-Public Use
  Company Number: IT-ALLERGAN-2042603US

PATIENT
  Sex: Female

DRUGS (4)
  1. DALBAVANCIN HCL UNK [Suspect]
     Active Substance: DALBAVANCIN HYDROCHLORIDE
     Dosage: 500 MG, SINGLE
     Route: 042
  2. DALBAVANCIN HCL UNK [Suspect]
     Active Substance: DALBAVANCIN HYDROCHLORIDE
     Indication: ENDOCARDITIS
     Dosage: 500 MG, SINGLE
     Route: 042
  3. DALBAVANCIN HCL UNK [Suspect]
     Active Substance: DALBAVANCIN HYDROCHLORIDE
     Dosage: 500 MG, SINGLE
     Route: 042
  4. DALBAVANCIN HCL UNK [Suspect]
     Active Substance: DALBAVANCIN HYDROCHLORIDE
     Dosage: 1000 MG, SINGLE
     Route: 042

REACTIONS (3)
  - Off label use [Unknown]
  - Escherichia bacteraemia [Unknown]
  - Pemphigus [Unknown]
